FAERS Safety Report 8234584-2 (Version None)
Quarter: 2012Q1

REPORT INFORMATION
  Report Type: 
  Country: None (occurrence: None)
  Receive Date: 20120326
  Receipt Date: 20120222
  Transmission Date: 20120608
  Serious: Yes (Hospitalization)
  Sender: FDA-Public Use
  Company Number: US-ROCHE-1052111

PATIENT
  Age: 52 Year
  Sex: Female
  Weight: 93 kg

DRUGS (3)
  1. PACLITAXEL [Suspect]
     Indication: CERVIX CARCINOMA RECURRENT
     Dosage: OVER 3 HOURS DAY 1
     Route: 042
     Dates: start: 20111130
  2. TOPOTECAN HYDROCHLORIDE [Suspect]
     Indication: CERVIX CARCINOMA RECURRENT
     Dosage: OVER 30 MIN ON DAYS 1-3
     Route: 042
     Dates: start: 20111130
  3. AVASTIN [Suspect]
     Indication: CERVIX CARCINOMA RECURRENT
     Dosage: OVER 30-90 MIN ON DAY 1
     Route: 042
     Dates: start: 20111130

REACTIONS (2)
  - ANAEMIA [None]
  - HAEMATURIA [None]
